FAERS Safety Report 4592378-3 (Version None)
Quarter: 2005Q1

REPORT INFORMATION
  Report Type: 
  Country: None (occurrence: None)
  Receive Date: 20050228
  Receipt Date: 20050106
  Transmission Date: 20050727
  Serious: No
  Sender: FDA-Public Use
  Company Number: US-BRISTOL-MYERS SQUIBB COMPANY-12816385

PATIENT
  Age: 58 Year
  Sex: Male
  Weight: 87 kg

DRUGS (6)
  1. ARIPIPRAZOLE [Suspect]
     Indication: WEIGHT INCREASED
     Route: 048
     Dates: start: 20041214
  2. OLANZAPINE [Concomitant]
  3. GLYBURIDE [Concomitant]
  4. RANITIDINE [Concomitant]
  5. LITHIUM [Concomitant]
  6. DEPAKOTE [Concomitant]

REACTIONS (1)
  - DIPLOPIA [None]
